FAERS Safety Report 6712018-4 (Version None)
Quarter: 2010Q2

REPORT INFORMATION
  Report Type: 
  Country: None (occurrence: None)
  Receive Date: 20100505
  Receipt Date: 20100423
  Transmission Date: 20101027
  Serious: Yes (Other)
  Sender: FDA-Public Use
  Company Number: US-PFIZER INC-2010037420

PATIENT
  Age: 79 Year
  Sex: Male

DRUGS (5)
  1. XALATAN [Suspect]
     Indication: GLAUCOMA
     Dosage: ONE DROP IN EACH EYE DAILY AT BEDTIME
     Route: 047
     Dates: start: 20051019, end: 20100318
  2. ALPHAGAN P [Concomitant]
     Indication: GLAUCOMA
     Dosage: 0.1%, 2X/DAY
     Route: 047
     Dates: start: 20070101
  3. LIPITOR [Concomitant]
     Dosage: UNK
     Route: 048
  4. VALSARTAN [Concomitant]
     Dosage: UNK
     Route: 048
  5. INSULIN [Concomitant]
     Indication: DIABETES MELLITUS
     Dosage: UNK

REACTIONS (3)
  - EYE OEDEMA [None]
  - EYE PRURITUS [None]
  - OCULAR HYPERAEMIA [None]
